FAERS Safety Report 21113167 (Version 1)
Quarter: 2022Q3

REPORT INFORMATION
  Report Type: Report from Study
  Country: US (occurrence: US)
  Receive Date: 20220721
  Receipt Date: 20220721
  Transmission Date: 20221027
  Serious: Yes (Hospitalization)
  Sender: FDA-Public Use
  Company Number: US-GILEAD-2022-0590431

PATIENT
  Sex: Male

DRUGS (2)
  1. AMBRISENTAN [Suspect]
     Active Substance: AMBRISENTAN
     Indication: Product used for unknown indication
     Dosage: 5 MG, QD
     Route: 048
     Dates: start: 20160914
  2. UPTRAVI [Concomitant]
     Active Substance: SELEXIPAG

REACTIONS (6)
  - Asthma [Unknown]
  - Lung disorder [Unknown]
  - Cough [Unknown]
  - Sputum increased [Unknown]
  - Weight increased [Unknown]
  - Catheterisation cardiac [Unknown]
